FAERS Safety Report 6242777-9 (Version None)
Quarter: 2009Q2

REPORT INFORMATION
  Report Type: 
  Country: None (occurrence: None)
  Receive Date: 20090624
  Receipt Date: 20090616
  Transmission Date: 20091009
  Serious: Yes (Hospitalization)
  Sender: FDA-Public Use
  Company Number: US-JNJFOC-20090606176

PATIENT
  Sex: Female
  Weight: 61.24 kg

DRUGS (6)
  1. DURAGESIC-100 [Suspect]
     Route: 062
  2. DURAGESIC-100 [Suspect]
     Indication: PAIN IN EXTREMITY
     Route: 062
  3. FENTANYL [Suspect]
     Indication: PAIN IN EXTREMITY
     Route: 062
  4. DILAUDID [Concomitant]
     Indication: PAIN
     Route: 048
  5. ROBAXIN [Concomitant]
     Indication: MUSCLE SPASMS
     Route: 048
  6. ALPRAZOLAM [Concomitant]
     Indication: PAIN
     Route: 048

REACTIONS (11)
  - AMNESIA [None]
  - ATTENTION DEFICIT/HYPERACTIVITY DISORDER [None]
  - BACK PAIN [None]
  - CONCUSSION [None]
  - EMOTIONAL DISORDER [None]
  - FALL [None]
  - FIBROMYALGIA [None]
  - LOSS OF CONSCIOUSNESS [None]
  - SKIN LACERATION [None]
  - WEIGHT INCREASED [None]
  - WRONG TECHNIQUE IN DRUG USAGE PROCESS [None]
